FAERS Safety Report 6581081-6 (Version None)
Quarter: 2010Q1

REPORT INFORMATION
  Report Type: 
  Country: None (occurrence: None)
  Receive Date: 20100215
  Receipt Date: 20100204
  Transmission Date: 20100710
  Serious: Yes (Death, Other)
  Sender: FDA-Public Use
  Company Number: JP-NOVOPROD-304078

PATIENT
  Sex: Female
  Weight: 4.5 kg

DRUGS (7)
  1. NOVOSEVEN [Suspect]
     Indication: PLEURAL HAEMORRHAGE
     Dosage: 0.4 MG, QD
     Dates: start: 20070919, end: 20070919
  2. NOVOSEVEN [Suspect]
     Dosage: 0.4 MG, BID
     Dates: start: 20070920, end: 20070920
  3. TACHOCOMB                          /02406701/ [Concomitant]
     Dates: start: 20070919, end: 20070919
  4. RED BLOOD CELLS [Concomitant]
     Dosage: 283.3ML/DIV
     Dates: start: 20070919, end: 20070919
  5. PLATELETS [Concomitant]
     Dosage: 283.3ML/DIV
     Dates: start: 20070919, end: 20070919
  6. FRESH FROZEN PLASMA [Concomitant]
     Dosage: 141.7ML/DIV
     Dates: start: 20070919, end: 20070919
  7. TRANSAMIN [Concomitant]
     Dosage: /IV
     Route: 042
     Dates: start: 20070919, end: 20070919

REACTIONS (2)
  - DEATH [None]
  - DRUG INEFFECTIVE [None]
